FAERS Safety Report 8431976-3 (Version None)
Quarter: 2012Q2

REPORT INFORMATION
  Report Type: 
  Country: None (occurrence: None)
  Receive Date: 20120613
  Receipt Date: 20110606
  Transmission Date: 20120825
  Serious: No
  Sender: FDA-Public Use
  Company Number: US-ASTRAZENECA-2011SE34945

PATIENT
  Age: 34 Year
  Sex: Female

DRUGS (1)
  1. RHINOCORT [Suspect]
     Indication: NASOPHARYNGITIS
     Route: 045

REACTIONS (4)
  - DRUG INEFFECTIVE FOR UNAPPROVED INDICATION [None]
  - NASOPHARYNGITIS [None]
  - OFF LABEL USE [None]
  - MATERNAL EXPOSURE DURING PREGNANCY [None]
